FAERS Safety Report 4401338-4 (Version None)
Quarter: 2004Q3

REPORT INFORMATION
  Report Type: 
  Country: None (occurrence: None)
  Receive Date: 20040907
  Receipt Date: 20040316
  Transmission Date: 20050211
  Serious: No
  Sender: FDA-Public Use
  Company Number: US-BRISTOL-MYERS SQUIBB COMPANY-12534376

PATIENT
  Age: 82 Year
  Sex: Male
  Weight: 80 kg

DRUGS (7)
  1. COUMADIN [Suspect]
     Indication: THROMBOSIS PROPHYLAXIS
     Dosage: 2.5 MG ONCE DAILY ON M,W,TH,SAT. AND SUN. AND 5 MG ONCE DAILY ON TUES. AND FRI.
     Route: 048
  2. ADVAIR DISKUS 100/50 [Concomitant]
  3. COMBIVENT [Concomitant]
  4. NEXIUM [Concomitant]
  5. HYDROCHLOROTHIAZIDE [Concomitant]
  6. KEPPRA [Concomitant]
  7. ALBUTEROL [Concomitant]

REACTIONS (1)
  - INTERNATIONAL NORMALISED RATIO ABNORMAL [None]
